FAERS Safety Report 18928620 (Version 1)
Quarter: 2021Q1

REPORT INFORMATION
  Report Type: Spontaneous
  Country: US (occurrence: US)
  Receive Date: 20210223
  Receipt Date: 20210223
  Transmission Date: 20210420
  Serious: No
  Sender: FDA-Public Use
  Company Number: US-KYOWAKIRIN-2021BKK002728

PATIENT

DRUGS (2)
  1. CRYSVITA [Suspect]
     Active Substance: BUROSUMAB-TWZA
     Indication: HEREDITARY HYPOPHOSPHATAEMIC RICKETS
     Dosage: 90 MG, 4 INJECTIONS
     Route: 065
     Dates: start: 20210216
  2. CRYSVITA [Suspect]
     Active Substance: BUROSUMAB-TWZA
     Dosage: 2 INJECTIONS
     Route: 065

REACTIONS (6)
  - Somnolence [Unknown]
  - Fatigue [Not Recovered/Not Resolved]
  - Limb discomfort [Unknown]
  - Heart rate increased [Unknown]
  - Hypoaesthesia [Unknown]
  - Blood phosphorus abnormal [Unknown]

NARRATIVE: CASE EVENT DATE: 2021
